FAERS Safety Report 12217707 (Version 1)
Quarter: 2016Q1

REPORT INFORMATION
  Report Type: Spontaneous
  Country: US (occurrence: US)
  Receive Date: 20160329
  Receipt Date: 20160329
  Transmission Date: 20160526
  Serious: Yes (Hospitalization, Other)
  Sender: FDA-Public Use
  Company Number: US-ASTELLAS-2016US010707

PATIENT
  Age: 34 Year
  Sex: Female

DRUGS (3)
  1. MYCOPHENOLATE MOFETIL. [Concomitant]
     Active Substance: MYCOPHENOLATE MOFETIL
     Indication: RENAL TRANSPLANT
     Dosage: UNK UNK, UNKNOWN FREQ.
     Route: 065
  2. TAG?BASILIXUMAB [Concomitant]
     Indication: RENAL TRANSPLANT
     Dosage: UNK, UNKNOWN FREQ.
     Route: 065
  3. TACROLIMUS. [Suspect]
     Active Substance: TACROLIMUS
     Indication: RENAL TRANSPLANT
     Dosage: UNK UNK, UNKNOWN FREQ.
     Route: 065

REACTIONS (8)
  - Oesophagitis [Unknown]
  - Cytomegalovirus infection [Unknown]
  - Haematocrit decreased [Unknown]
  - Gastrointestinal necrosis [Recovering/Resolving]
  - Melaena [Unknown]
  - Necrosis ischaemic [Recovering/Resolving]
  - Gastrointestinal haemorrhage [Recovered/Resolved]
  - Renal vein thrombosis [Recovering/Resolving]
